FAERS Safety Report 8352927-6 (Version None)
Quarter: 2012Q2

REPORT INFORMATION
  Report Type: 
  Country: None (occurrence: None)
  Receive Date: 20120511
  Receipt Date: 20120509
  Transmission Date: 20120825
  Serious: Yes (Hospitalization)
  Sender: FDA-Public Use
  Company Number: JP-PFIZER INC-2012112537

PATIENT
  Age: 76 Year
  Sex: Female

DRUGS (2)
  1. MELOXICAM [Suspect]
     Indication: BACK PAIN
     Dosage: UNK
     Route: 048
  2. AMLODIPINE BESYLATE [Suspect]
     Indication: HYPERTENSION
     Dosage: UNK
     Route: 048
     Dates: start: 20110401

REACTIONS (2)
  - PNEUMONIA [None]
  - PULMONARY EMBOLISM [None]
